FAERS Safety Report 14684525 (Version 1)
Quarter: 2018Q1

REPORT INFORMATION
  Report Type: Spontaneous
  Country: US (occurrence: US)
  Receive Date: 20180327
  Receipt Date: 20180327
  Transmission Date: 20180509
  Serious: Yes (Hospitalization)
  Sender: FDA-Public Use
  Company Number: US-JNJFOC-20180331047

PATIENT
  Age: 65 Year
  Sex: Male

DRUGS (1)
  1. INVOKANA [Suspect]
     Active Substance: CANAGLIFLOZIN
     Indication: DIABETES MELLITUS
     Route: 048

REACTIONS (6)
  - Cellulitis [Unknown]
  - Gas gangrene [Unknown]
  - Skin ulcer [Unknown]
  - Foot amputation [Unknown]
  - Osteomyelitis [Unknown]
  - Sepsis [Unknown]

NARRATIVE: CASE EVENT DATE: 201508
